FAERS Safety Report 6725397-9 (Version None)
Quarter: 2010Q2

REPORT INFORMATION
  Report Type: 
  Country: None (occurrence: None)
  Receive Date: 20100514
  Receipt Date: 20100514
  Transmission Date: 20101027
  Serious: No
  Sender: FDA-Public Use
  Company Number: None

PATIENT
  Age: 2 Year
  Sex: Female
  Weight: 12.7007 kg

DRUGS (4)
  1. ALL DAY ALLERGY 1MG/1ML HY-VEE [Suspect]
     Indication: ASTHMA
     Dosage: 1/2 TEASPOONFUL BEDTIME PO
     Route: 048
     Dates: start: 20090415, end: 20091015
  2. ALL DAY ALLERGY 1MG/1ML HY-VEE [Suspect]
     Indication: SEASONAL ALLERGY
     Dosage: 1/2 TEASPOONFUL BEDTIME PO
     Route: 048
     Dates: start: 20090415, end: 20091015
  3. ZYRTEC [Concomitant]
  4. . [Concomitant]

REACTIONS (3)
  - AGGRESSION [None]
  - NIGHTMARE [None]
  - SLEEP DISORDER [None]
